FAERS Safety Report 8184149-6 (Version None)
Quarter: 2012Q1

REPORT INFORMATION
  Report Type: 
  Country: None (occurrence: None)
  Receive Date: 20120305
  Receipt Date: 20120226
  Transmission Date: 20120608
  Serious: No
  Sender: FDA-Public Use
  Company Number: US-BAYER-2012-019873

PATIENT
  Age: 29 Year
  Sex: Female
  Weight: 52 kg

DRUGS (3)
  1. LEXAPRO [Concomitant]
  2. ALEVE (CAPLET) [Suspect]
     Dosage: 1 U, UNK
     Route: 048
     Dates: start: 20120201
  3. BENADRYL [Concomitant]

REACTIONS (3)
  - ADVERSE EVENT [None]
  - PRURITUS [None]
  - URTICARIA [None]
